FAERS Safety Report 5841017-X (Version None)
Quarter: 2008Q3

REPORT INFORMATION
  Report Type: 
  Country: None (occurrence: None)
  Receive Date: 20080811
  Receipt Date: 20080807
  Transmission Date: 20090109
  Serious: Yes (Hospitalization, Other)
  Sender: FDA-Public Use
  Company Number: US-MERCK-0803USA03008

PATIENT
  Age: 63 Year
  Sex: Female

DRUGS (1)
  1. FOSAMAX [Suspect]
     Indication: OSTEOPOROSIS
     Route: 048
     Dates: start: 19960101, end: 20050316

REACTIONS (16)
  - ACTINOMYCOSIS [None]
  - ACUTE HEPATIC FAILURE [None]
  - ADVERSE DRUG REACTION [None]
  - ALCOHOL ABUSE [None]
  - ANXIETY [None]
  - CLOSTRIDIUM DIFFICILE COLITIS [None]
  - DEPRESSION [None]
  - DIARRHOEA HAEMORRHAGIC [None]
  - FEMUR FRACTURE [None]
  - JAW DISORDER [None]
  - OSTEOMYELITIS [None]
  - OSTEONECROSIS [None]
  - PERIODONTITIS [None]
  - RESORPTION BONE INCREASED [None]
  - URTICARIA [None]
  - WEIGHT DECREASED [None]
